FAERS Safety Report 7908474-6 (Version None)
Quarter: 2011Q4

REPORT INFORMATION
  Report Type: 
  Country: None (occurrence: None)
  Receive Date: 20111111
  Receipt Date: 20111107
  Transmission Date: 20120403
  Serious: Yes (Death, Hospitalization)
  Sender: FDA-Public Use
  Company Number: US-CELGENEUS-163-21880-11091668

PATIENT
  Sex: Male

DRUGS (17)
  1. TRAVATAN [Concomitant]
     Route: 065
  2. VITAMIN D [Concomitant]
     Route: 065
  3. OXYCODONE HCL [Concomitant]
     Route: 065
  4. CALCIUM GLUCONATE [Concomitant]
     Route: 065
  5. PRILOSEC [Concomitant]
     Dosage: 20 MILLIGRAM
     Route: 065
  6. ACETAMINOPHEN [Concomitant]
     Route: 065
  7. DEXAMETHASONE [Concomitant]
     Route: 065
  8. REVLIMID [Suspect]
     Dosage: 25 MILLIGRAM
     Route: 048
     Dates: start: 20110701, end: 20110925
  9. PEPCID [Concomitant]
     Route: 065
  10. ASPIRIN [Concomitant]
     Route: 065
  11. AZOPT [Concomitant]
     Route: 047
  12. POTASSIUM [Concomitant]
     Route: 065
  13. REVLIMID [Suspect]
     Dosage: 25 MILLIGRAM
     Route: 048
     Dates: start: 20110408, end: 20110101
  14. SPIRIVA [Concomitant]
     Dosage: 250/50 PUFF
     Route: 065
  15. NEURONTIN [Concomitant]
     Dosage: 300 MILLIGRAM
     Route: 065
  16. MIRALAX [Concomitant]
     Route: 065
  17. CELEXA [Concomitant]
     Dosage: 20 MILLIGRAM
     Route: 065

REACTIONS (4)
  - FALL [None]
  - CHRONIC OBSTRUCTIVE PULMONARY DISEASE [None]
  - OSTEOMYELITIS [None]
  - CARDIAC FAILURE CONGESTIVE [None]
